FAERS Safety Report 6911664-2 (Version None)
Quarter: 2010Q3

REPORT INFORMATION
  Report Type: 
  Country: None (occurrence: None)
  Receive Date: 20100806
  Receipt Date: 20100730
  Transmission Date: 20110219
  Serious: Yes (Hospitalization)
  Sender: FDA-Public Use
  Company Number: PHHO2010ES11500

PATIENT
  Sex: Female
  Weight: 61 kg

DRUGS (4)
  1. CERTICAN [Suspect]
     Indication: LIVER TRANSPLANT
     Dosage: 1 MG, Q12H
     Route: 048
  2. CERTICAN [Suspect]
     Dosage: UNK
     Route: 048
     Dates: start: 20100731
  3. TACROLIMUS [Suspect]
     Indication: LIVER TRANSPLANT
     Dosage: 1.5 MG, QD
     Route: 048
  4. TACROLIMUS [Suspect]
     Dosage: UNK
     Route: 048
     Dates: start: 20100802

REACTIONS (5)
  - COUGH [None]
  - DYSPNOEA [None]
  - MULTIPLE DRUG OVERDOSE [None]
  - PNEUMONIA [None]
  - PYREXIA [None]
